FAERS Safety Report 5391053-5 (Version None)
Quarter: 2007Q3

REPORT INFORMATION
  Report Type: 
  Country: None (occurrence: None)
  Receive Date: 20070717
  Receipt Date: 20070711
  Transmission Date: 20080115
  Serious: Yes (Death)
  Sender: FDA-Public Use
  Company Number: 163-20785-07050946

PATIENT
  Age: 64 Year
  Sex: Female

DRUGS (3)
  1. THALOMID [Suspect]
     Indication: MULTIPLE MYELOMA
     Dosage: 100 MG, DAILY, ORAL
     Route: 048
  2. METOPROLOL TARTRATE [Concomitant]
  3. ASPIRIN [Concomitant]

REACTIONS (7)
  - ACIDOSIS [None]
  - ACUTE HEPATIC FAILURE [None]
  - COAGULOPATHY [None]
  - CONDITION AGGRAVATED [None]
  - HAEMODIALYSIS [None]
  - HEPATOMEGALY [None]
  - HEPATORENAL SYNDROME [None]
